FAERS Safety Report 5074580-X (Version None)
Quarter: 2006Q3

REPORT INFORMATION
  Report Type: 
  Country: None (occurrence: None)
  Receive Date: 20060808
  Receipt Date: 20060130
  Transmission Date: 20061208
  Serious: No
  Sender: FDA-Public Use
  Company Number: US-AMGEN-KDL167380

PATIENT
  Sex: Male
  Weight: 67.2 kg

DRUGS (7)
  1. PROCRIT [Suspect]
     Indication: ANAEMIA
     Route: 058
     Dates: start: 20060126, end: 20060126
  2. LASIX [Concomitant]
  3. CEFAZOLIN [Concomitant]
  4. REGLAN [Concomitant]
  5. DIOVAN [Concomitant]
  6. COUMADIN [Concomitant]
  7. TORADOL [Concomitant]

REACTIONS (2)
  - PLATELET COUNT DECREASED [None]
  - WHITE BLOOD CELL COUNT DECREASED [None]
